FAERS Safety Report 5329400-2 (Version None)
Quarter: 2007Q1

REPORT INFORMATION
  Report Type: 
  Country: None (occurrence: None)
  Receive Date: 20070223
  Receipt Date: 20060711
  Transmission Date: 20070707
  Serious: Yes (Life-Threatening, Hospitalization, Disabling, Other)
  Sender: FDA-Public Use
  Company Number: WAES 0607USA01817

PATIENT
  Age: 90 Year
  Sex: Male
  Weight: 88.4514 kg

DRUGS (12)
  1. ZOCOR [Suspect]
     Indication: BLOOD CHOLESTEROL INCREASED
     Dosage: 40 MG/DAILY/PO
     Route: 048
     Dates: start: 20060201, end: 20060422
  2. LOPID [Suspect]
     Dosage: 600 MG/BID
     Dates: end: 20060422
  3. ADVAIR DISKUS 100/50 [Concomitant]
  4. AEROBID [Concomitant]
  5. DILTIAZEM CD [Concomitant]
  6. PLAVIX [Concomitant]
  7. PRILOSEC [Concomitant]
  8. ALBUTEROL [Concomitant]
  9. ETODOLAC [Concomitant]
  10. FORMOTEROL FUMARATE [Concomitant]
  11. GLIPIZIDE [Concomitant]
  12. LISINOPRIL [Concomitant]

REACTIONS (7)
  - ANAEMIA [None]
  - ASTHMA [None]
  - BLADDER MASS [None]
  - DYSPEPSIA [None]
  - DYSPNOEA [None]
  - RENAL FAILURE ACUTE [None]
  - RHABDOMYOLYSIS [None]
